FAERS Safety Report 10265485 (Version 1)
Quarter: 2014Q2

REPORT INFORMATION
  Report Type: Spontaneous
  Country: US (occurrence: None)
  Receive Date: 20140625
  Receipt Date: 20140625
  Transmission Date: 20141212
  Serious: Yes (Hospitalization)
  Sender: FDA-Public Use
  Company Number: None

PATIENT
  Age: 69 Year
  Sex: Male

DRUGS (14)
  1. NAPROSYN [Suspect]
     Indication: ARTHRITIS
     Route: 048
  2. RIFAXIMIN [Concomitant]
  3. LACTULOSE [Concomitant]
  4. RIFAMPIN [Concomitant]
  5. URSODIOL [Concomitant]
  6. SULFASALAZINE [Concomitant]
  7. MVI [Concomitant]
  8. PREGABALIN [Concomitant]
  9. CHOLECALCIFERAL [Concomitant]
  10. DOXAZOSIN [Concomitant]
  11. ESOMEPRAZOLE [Concomitant]
  12. INSULIN GLARGINE [Concomitant]
  13. LISPRO [Concomitant]
  14. TRAMAL [Concomitant]

REACTIONS (14)
  - Renal failure acute [None]
  - Anaemia [None]
  - Liver disorder [None]
  - Disease recurrence [None]
  - Ascites [None]
  - Oedema [None]
  - Hyperkalaemia [None]
  - Fluid overload [None]
  - Weight increased [None]
  - Rectal haemorrhage [None]
  - Haematochezia [None]
  - Gingival bleeding [None]
  - Contusion [None]
  - Self-medication [None]
